FAERS Safety Report 21617859 (Version 1)
Quarter: 2022Q4

REPORT INFORMATION
  Report Type: Report from Study
  Country: US (occurrence: US)
  Receive Date: 20221119
  Receipt Date: 20221119
  Transmission Date: 20230113
  Serious: No
  Sender: FDA-Public Use
  Company Number: US-ABBVIE-4204411

PATIENT
  Sex: Female

DRUGS (7)
  1. VENCLEXTA [Suspect]
     Active Substance: VENETOCLAX
     Indication: Product used for unknown indication
     Route: 048
  2. IBUPROFEN PM [Concomitant]
     Active Substance: DIPHENHYDRAMINE CITRATE\IBUPROFEN
     Indication: Product used for unknown indication
  3. FLUTICASONE [Concomitant]
     Active Substance: FLUTICASONE
     Indication: Product used for unknown indication
  4. ALLOPURINOL [Concomitant]
     Active Substance: ALLOPURINOL
     Indication: Product used for unknown indication
  5. ATORVASTATIN [Concomitant]
     Active Substance: ATORVASTATIN
     Indication: Product used for unknown indication
  6. METFORMIN [Concomitant]
     Active Substance: METFORMIN HYDROCHLORIDE
     Indication: Product used for unknown indication
  7. GAZYVA [Concomitant]
     Active Substance: OBINUTUZUMAB
     Indication: Product used for unknown indication

REACTIONS (2)
  - Nausea [Recovering/Resolving]
  - Vomiting [Recovering/Resolving]
